FAERS Safety Report 19408640 (Version 2)
Quarter: 2021Q2

REPORT INFORMATION
  Report Type: Spontaneous
  Country: US (occurrence: US)
  Receive Date: 20210613
  Receipt Date: 20210622
  Transmission Date: 20210717
  Serious: No
  Sender: FDA-Public Use
  Company Number: US-TEVA-2021-US-1915663

PATIENT
  Sex: Male

DRUGS (1)
  1. LEVALBUTEROL TARTRATE. [Suspect]
     Active Substance: LEVALBUTEROL TARTRATE
     Dosage: 90 MICROGRAM DAILY; HFA INH 45MCG/ACT? 200
     Route: 065

REACTIONS (2)
  - Device malfunction [Unknown]
  - Drug ineffective [Unknown]
